FAERS Safety Report 6165440-1 (Version None)
Quarter: 2009Q2

REPORT INFORMATION
  Report Type: 
  Country: None (occurrence: None)
  Receive Date: 20090423
  Receipt Date: 20090420
  Transmission Date: 20091009
  Serious: Yes (Life-Threatening, Hospitalization)
  Sender: FDA-Public Use
  Company Number: PHHY2009PL14890

PATIENT
  Age: 23 Year
  Sex: Male

DRUGS (1)
  1. CLOZAPINE [Suspect]

REACTIONS (10)
  - ABDOMINAL PAIN UPPER [None]
  - ASPIRATION TRACHEAL [None]
  - BRAIN OEDEMA [None]
  - CARDIO-RESPIRATORY ARREST [None]
  - CHEST PAIN [None]
  - MENTAL IMPAIRMENT [None]
  - OVERDOSE [None]
  - PNEUMOMEDIASTINUM [None]
  - RESUSCITATION [None]
  - VOMITING [None]
